FAERS Safety Report 16709458 (Version 1)
Quarter: 2019Q3

REPORT INFORMATION
  Report Type: Spontaneous
  Country: GB (occurrence: GB)
  Receive Date: 20190816
  Receipt Date: 20190816
  Transmission Date: 20191004
  Serious: Yes (Other)
  Sender: FDA-Public Use
  Company Number: GB-ACCORD-151436

PATIENT
  Age: 70 Year
  Sex: Male
  Weight: 83.46 kg

DRUGS (3)
  1. LORATADINE. [Concomitant]
     Active Substance: LORATADINE
  2. MOMETASONE [Concomitant]
     Active Substance: MOMETASONE
  3. RAMIPRIL. [Suspect]
     Active Substance: RAMIPRIL
     Indication: HYPERTENSION
     Route: 048
     Dates: start: 2005, end: 20190205

REACTIONS (4)
  - Dry mouth [Unknown]
  - Oral lichen planus [Recovering/Resolving]
  - Lichen planus [Recovering/Resolving]
  - Oral pain [Unknown]

NARRATIVE: CASE EVENT DATE: 2010
